FAERS Safety Report 6437822-1 (Version None)
Quarter: 2009Q4

REPORT INFORMATION
  Report Type: 
  Country: None (occurrence: None)
  Receive Date: 20091112
  Receipt Date: 20091103
  Transmission Date: 20100525
  Serious: Yes (Other)
  Sender: FDA-Public Use
  Company Number: US-AMGEN-QUU372734

PATIENT
  Sex: Female

DRUGS (4)
  1. ENBREL [Suspect]
     Indication: RHEUMATOID ARTHRITIS
     Dates: start: 20020101
  2. ANTIINFLAMMATORY NOS [Concomitant]
  3. FELDENE [Concomitant]
  4. INFLUENZA VACCINE [Concomitant]
     Route: 045

REACTIONS (1)
  - INFERTILITY FEMALE [None]
